FAERS Safety Report 24645733 (Version 1)
Quarter: 2024Q4

REPORT INFORMATION
  Report Type: Spontaneous
  Country: FR (occurrence: FR)
  Receive Date: 20241121
  Receipt Date: 20241121
  Transmission Date: 20250115
  Serious: Yes (Other)
  Sender: EMD SERONO INC
  Company Number: None

PATIENT
  Age: 15 Year
  Sex: Male
  Weight: 42 kg

DRUGS (10)
  1. SAIZEN [Suspect]
     Active Substance: SOMATROPIN
     Indication: Congenital growth hormone deficiency
     Dosage: 6 DAYS/7
     Route: 058
     Dates: start: 20221108, end: 20240123
  2. SAIZEN [Suspect]
     Active Substance: SOMATROPIN
     Dosage: 6JOURS/7
     Route: 058
     Dates: start: 20240124
  3. RAPAMUNE [Suspect]
     Active Substance: SIROLIMUS
     Indication: Immunodeficiency
     Route: 048
     Dates: start: 201912
  4. TESTOSTERONE [Concomitant]
     Active Substance: TESTOSTERONE
     Indication: Product used for unknown indication
  5. CLAIRYG [Concomitant]
     Active Substance: HUMAN IMMUNOGLOBULIN G
     Indication: Product used for unknown indication
  6. LEVOTHYROXINE [Concomitant]
     Active Substance: LEVOTHYROXINE
     Indication: Product used for unknown indication
  7. BACTRIM [Concomitant]
     Active Substance: SULFAMETHOXAZOLE\TRIMETHOPRIM
     Indication: Product used for unknown indication
  8. ZITHROMAX [Concomitant]
     Active Substance: AZITHROMYCIN DIHYDRATE
     Indication: Product used for unknown indication
  9. BUDESONIDE [Concomitant]
     Active Substance: BUDESONIDE
     Indication: Product used for unknown indication
  10. CREON [Concomitant]
     Active Substance: PANCRELIPASE AMYLASE\PANCRELIPASE LIPASE\PANCRELIPASE PROTEASE
     Indication: Product used for unknown indication

REACTIONS (1)
  - Lymphoedema [Not Recovered/Not Resolved]

NARRATIVE: CASE EVENT DATE: 20230801
